FAERS Safety Report 10751786 (Version 1)
Quarter: 2015Q1

REPORT INFORMATION
  Report Type: Spontaneous
  Country: SG (occurrence: None)
  Receive Date: 20150128
  Receipt Date: 20150128
  Transmission Date: 20150721
  Serious: Yes (Hospitalization, Other)
  Sender: FDA-Public Use
  Company Number: 2015-10367

PATIENT
  Age: 40 Year
  Sex: Female

DRUGS (1)
  1. EYLEA [Suspect]
     Active Substance: AFLIBERCEPT
     Indication: DIABETIC RETINAL OEDEMA
     Route: 031
     Dates: start: 20140816, end: 20140816

REACTIONS (2)
  - Vitreous haemorrhage [None]
  - Transient ischaemic attack [None]

NARRATIVE: CASE EVENT DATE: 20140816
